FAERS Safety Report 8708979 (Version 2)
Quarter: 2012Q4

REPORT INFORMATION
  Report Type: 
  Country: US (occurrence: US)
  Receive Date: 20120806
  Receipt Date: 20120829
  Transmission Date: 20130627
  Serious: Yes (Other)
  Sender: FDA-Public Use
  Company Number: US-PFIZER INC-2012186115

PATIENT
  Age: 74 Year
  Sex: Female
  Weight: 41.72 kg

DRUGS (32)
  1. VFEND [Suspect]
     Indication: ASPERGILLOSIS
     Dosage: 200 mg, every 12 hours
     Route: 048
     Dates: start: 201112
  2. VFEND [Suspect]
     Indication: PULMONARY FIBROSIS
  3. VFEND [Suspect]
     Indication: ANTIFUNGAL PROPHYLAXIS
  4. TRAMADOL [Suspect]
     Indication: PAIN
     Dosage: 25 mg, 1x/day
     Route: 048
     Dates: start: 2012
  5. TRAMADOL [Suspect]
     Indication: BACK PAIN
     Dosage: half tablet of 50mg as needed
     Route: 048
     Dates: start: 2012
  6. TRAMADOL [Suspect]
     Indication: MUSCULOSKELETAL CHEST PAIN
     Dosage: one tablet of 50mg as needed
     Route: 048
  7. TRAMADOL [Suspect]
     Indication: MUSCULOSKELETAL PAIN
  8. TRAMADOL [Suspect]
     Indication: ARTHRALGIA
  9. PREDNISONE [Suspect]
     Indication: LUNG TRANSPLANT
     Dosage: 5 mg, 1x/day
  10. MYCOPHENOLATE MOFETIL [Concomitant]
     Indication: TRANSPLANT REJECTION
     Dosage: 500 mg, every 12 hours
  11. MYCOPHENOLATE MOFETIL [Concomitant]
     Indication: IMMUNOSUPPRESSANT DRUG THERAPY
  12. TACROLIMUS [Concomitant]
     Indication: IMMUNOSUPPRESSANT DRUG THERAPY
     Dosage: 0.5 mg, every 12 hours
  13. ACYCLOVIR [Concomitant]
     Dosage: UNK
  14. PANTOPRAZOLE [Concomitant]
     Indication: GASTRITIS
     Dosage: 40 mg, 1x/day
  15. AZITHROMYCIN [Concomitant]
     Indication: ANTIFUNGAL PROPHYLAXIS
     Dosage: 250 mg, 3x/Week
  16. SULFAMETHOXAZOLE [Concomitant]
     Dosage: one tablet, every three weeks
  17. LEVOTHYROXINE [Concomitant]
     Indication: HYPOTHYROIDISM
     Dosage: 75 ug, 1x/day
  18. ASPIRIN [Concomitant]
     Indication: ANTICOAGULANT THERAPY
     Dosage: 81 mg, Daily
  19. LOVASTATIN [Concomitant]
     Indication: BLOOD CHOLESTEROL INCREASED
     Dosage: 20 mg, 1x/day
  20. AMOXICILLIN [Concomitant]
     Indication: PROPHYLAXIS URINARY TRACT INFECTION
     Dosage: 125 mg, Daily
     Route: 048
  21. BENADRYL [Concomitant]
     Indication: SLEEP DISORDER
     Dosage: 25 mg, UNK
  22. MAGNESIUM [Concomitant]
     Dosage: UNK
  23. VITAMIN D [Concomitant]
     Dosage: 1000 mg, Daily
  24. PENCICLOVIR [Concomitant]
     Indication: ORAL HERPES
     Dosage: 350 mg, 2x/day
  25. SYNTHROID [Concomitant]
     Indication: THYROID DISORDER
     Dosage: 0.075 mg, daily
  26. ESTROGENS [Concomitant]
     Indication: OOPHORECTOMY
     Dosage: UNK,as needed
  27. ALENDRONATE SODIUM [Concomitant]
     Dosage: 70 mg, weekly
  28. CALCIUM CARBONATE [Concomitant]
     Dosage: UNK,daily
  29. ALBUTEROL [Concomitant]
     Dosage: UNK,as needed
  30. VITAMIN B12 [Concomitant]
     Indication: PERNICIOUS ANAEMIA
     Dosage: 1000 mg, monthly
  31. SULFAMETHOXAZOLE W/TRIMETHOPRIM [Concomitant]
     Indication: LUNG DISORDER
     Dosage: UNK,3x/week
  32. PROBIOTICS [Concomitant]
     Indication: LACTOSE INTOLERANCE
     Dosage: one to ten doses daily

REACTIONS (14)
  - Hallucination [Not Recovered/Not Resolved]
  - Rib fracture [Unknown]
  - Glaucoma [Unknown]
  - Back pain [Not Recovered/Not Resolved]
  - Musculoskeletal chest pain [Not Recovered/Not Resolved]
  - Musculoskeletal pain [Not Recovered/Not Resolved]
  - Arthralgia [Not Recovered/Not Resolved]
  - Gastritis [Unknown]
  - Sleep talking [Not Recovered/Not Resolved]
  - Insomnia [Not Recovered/Not Resolved]
  - Weight decreased [Unknown]
  - Decreased appetite [Not Recovered/Not Resolved]
  - Asthenia [Not Recovered/Not Resolved]
  - Fatigue [Not Recovered/Not Resolved]
